FAERS Safety Report 8032932-X (Version None)
Quarter: 2012Q1

REPORT INFORMATION
  Report Type: 
  Country: None (occurrence: None)
  Receive Date: 20120110
  Receipt Date: 20120104
  Transmission Date: 20120608
  Serious: Yes (Disabling, Other)
  Sender: FDA-Public Use
  Company Number: US-PFIZER INC-2008087577

PATIENT
  Sex: Female
  Weight: 67.574 kg

DRUGS (9)
  1. LIPITOR [Suspect]
     Dosage: 20 MG, 1X/DAY
     Route: 048
  2. NEXIUM [Concomitant]
     Dosage: UNK, 1X/DAY
  3. LIPITOR [Suspect]
     Dosage: UNK
  4. LIPITOR [Suspect]
     Dosage: 40 MG, 1X/DAY
  5. LORAZEPAM [Concomitant]
     Dosage: UNK
  6. LYRICA [Suspect]
     Indication: PAIN
     Dosage: UNK
     Dates: start: 20080101, end: 20080101
  7. DIOVAN HCT [Concomitant]
     Dosage: [HYDROCHLOROTHIAZIDE 160]/[VALSARTAN 25], UNK
  8. LIPITOR [Suspect]
     Indication: BLOOD CHOLESTEROL INCREASED
     Dosage: 40 MG, 1X/DAY
     Route: 048
  9. LYRICA [Suspect]
     Indication: SPINAL COLUMN STENOSIS

REACTIONS (11)
  - PNEUMONIA [None]
  - ARTERIAL REPAIR [None]
  - DRY MOUTH [None]
  - MYALGIA [None]
  - FLUID RETENTION [None]
  - NEUROPATHY PERIPHERAL [None]
  - SPINAL COLUMN STENOSIS [None]
  - OEDEMA PERIPHERAL [None]
  - PAIN [None]
  - PAIN IN EXTREMITY [None]
  - VITAMIN B12 DEFICIENCY [None]
